FAERS Safety Report 11240696 (Version 1)
Quarter: 2015Q3

REPORT INFORMATION
  Report Type: Report from Study
  Country: NZ (occurrence: NZ)
  Receive Date: 20150706
  Receipt Date: 20150706
  Transmission Date: 20151125
  Serious: Yes (Life-Threatening, Hospitalization, Other)
  Sender: FDA-Public Use
  Company Number: PHHO2014NZ006793

PATIENT
  Age: 70 Year
  Sex: Female

DRUGS (6)
  1. ACLASTA [Suspect]
     Active Substance: ZOLEDRONIC ACID
     Indication: OSTEOPOROSIS POSTMENOPAUSAL
     Dosage: DOUBLE BLINDED
     Route: 042
     Dates: start: 20101122, end: 20131206
  2. PLACEBO [Suspect]
     Active Substance: UNSPECIFIED INGREDIENT
     Indication: OSTEOPOROSIS POSTMENOPAUSAL
     Dosage: DOUBLE BLINDED
     Route: 042
     Dates: start: 20101122, end: 20131206
  3. R CHOP [Concomitant]
     Active Substance: CYCLOPHOSPHAMIDE\DOXORUBICIN\PREDNISONE\RITUXIMAB\VINCRISTINE
  4. BLINDED ZOLEDRONATE [Suspect]
     Active Substance: ZOLEDRONATE DISODIUM
     Indication: OSTEOPOROSIS POSTMENOPAUSAL
     Dosage: DOUBLE BLINDED
     Route: 042
     Dates: start: 20101122, end: 20131206
  5. BLINDED NO TREATMENT RECEIVED [Suspect]
     Active Substance: UNSPECIFIED INGREDIENT
     Indication: OSTEOPOROSIS POSTMENOPAUSAL
     Dosage: DOUBLE BLINDED
     Route: 042
     Dates: start: 20101122, end: 20131206
  6. DOXORUBICIN [Suspect]
     Active Substance: DOXORUBICIN
     Indication: PRODUCT USED FOR UNKNOWN INDICATION
     Route: 065

REACTIONS (13)
  - Gastric ulcer perforation [Recovered/Resolved with Sequelae]
  - Deep vein thrombosis [Recovered/Resolved with Sequelae]
  - Wound infection staphylococcal [Recovered/Resolved]
  - Hepatic mass [Not Recovered/Not Resolved]
  - Pneumonia pneumococcal [Recovered/Resolved]
  - Urinary tract infection [Recovered/Resolved]
  - Ventricular fibrillation [Not Recovered/Not Resolved]
  - Supraventricular tachycardia [Recovered/Resolved]
  - Enterocolitis [Recovered/Resolved]
  - Oral candidiasis [Recovered/Resolved]
  - Diffuse large B-cell lymphoma stage IV [Not Recovered/Not Resolved]
  - Neutropenic sepsis [Recovered/Resolved with Sequelae]
  - Cardiomyopathy [Not Recovered/Not Resolved]

NARRATIVE: CASE EVENT DATE: 20140317
